FAERS Safety Report 22300534 (Version 1)
Quarter: 2023Q2

REPORT INFORMATION
  Report Type: Other
  Country: None (occurrence: US)
  Receive Date: 20230509
  Receipt Date: 20230509
  Transmission Date: 20230721
  Serious: Yes (Life-Threatening)
  Sender: FDA-Public Use
  Company Number: US-B.Braun Medical Inc.-2141295

PATIENT
  Age: 75 Year
  Sex: Male

DRUGS (9)
  1. MEROPENEM\SODIUM CHLORIDE [Suspect]
     Active Substance: MEROPENEM\SODIUM CHLORIDE
     Indication: Pneumonia
     Route: 042
  2. LISINOPRIL [Concomitant]
     Active Substance: LISINOPRIL
  3. TAMSULOSIN [Concomitant]
     Active Substance: TAMSULOSIN
  4. RITUXIMAB [Concomitant]
     Active Substance: RITUXIMAB
  5. ZANUBRUTINIB [Concomitant]
     Active Substance: ZANUBRUTINIB
  6. AMPHOTERICIN B [Concomitant]
     Active Substance: AMPHOTERICIN B
  7. AMPHOTERICIN B [Concomitant]
     Active Substance: AMPHOTERICIN B
  8. FLUCYTOSINE [Concomitant]
     Active Substance: FLUCYTOSINE
  9. LINEZOLID [Suspect]
     Active Substance: LINEZOLID

REACTIONS (1)
  - Drug ineffective [Unknown]
